FAERS Safety Report 6916598-5 (Version None)
Quarter: 2010Q3

REPORT INFORMATION
  Report Type: 
  Country: None (occurrence: None)
  Receive Date: 20100810
  Receipt Date: 20100727
  Transmission Date: 20110219
  Serious: Yes (Hospitalization)
  Sender: FDA-Public Use
  Company Number: CA-ELI_LILLY_AND_COMPANY-CA201007003415

PATIENT
  Sex: Male

DRUGS (20)
  1. GEMCITABINE HCL [Suspect]
     Indication: PANCREATIC CARCINOMA
     Dosage: 1000 MG/M2, OTHER
     Route: 042
     Dates: start: 20100412
  2. OTHER PHARMA COMPANY INV DRUG [Suspect]
     Indication: PANCREATIC CARCINOMA
     Dosage: 125 MG/M2, OTHER
     Route: 042
     Dates: start: 20100412
  3. DOMPERIDONE [Concomitant]
     Indication: DYSPEPSIA
  4. NEXIUM [Concomitant]
     Indication: DYSPEPSIA
  5. COLACE [Concomitant]
     Indication: CONSTIPATION
  6. SENOKOT [Concomitant]
     Indication: CONSTIPATION
  7. OXYCONTIN [Concomitant]
     Indication: PAIN
     Dates: start: 20100607
  8. OXYCODONE HCL [Concomitant]
     Indication: ABDOMINAL PAIN
  9. LACTULOSE [Concomitant]
     Indication: CONSTIPATION
  10. ONDANSETRON [Concomitant]
     Indication: NAUSEA
     Dates: start: 20100301
  11. PANCRELIPASE [Concomitant]
     Indication: PANCREATIC ENZYMES DECREASED
  12. PROCTOSEDYL [Concomitant]
     Indication: HAEMORRHOIDS
  13. FRAGMIN [Concomitant]
     Indication: PORTAL VEIN THROMBOSIS
     Route: 058
  14. BIOTENE [Concomitant]
     Indication: MUCOSAL INFLAMMATION
     Route: 048
     Dates: start: 20100510
  15. OXAZEPAM [Concomitant]
     Indication: INSOMNIA
     Route: 048
     Dates: start: 20100605
  16. SPIRONOLACTONE [Concomitant]
     Indication: OEDEMA
     Route: 048
     Dates: start: 20100701
  17. LASIX [Concomitant]
     Indication: OEDEMA PERIPHERAL
     Route: 048
     Dates: start: 20100618
  18. STEMETIL [Concomitant]
     Indication: NAUSEA
     Route: 048
     Dates: start: 20100412
  19. OVOL [Concomitant]
     Indication: ABDOMINAL DISTENSION
     Route: 048
     Dates: start: 20100628
  20. SALINE [Concomitant]
     Indication: DEHYDRATION
     Route: 042
     Dates: start: 20100705

REACTIONS (1)
  - PNEUMONIA [None]
